FAERS Safety Report 10283176 (Version 2)
Quarter: 2014Q3

REPORT INFORMATION
  Report Type: Other
  Country: GB (occurrence: GB)
  Receive Date: 20140708
  Receipt Date: 20140711
  Transmission Date: 20150326
  Serious: Yes (Other)
  Sender: FDA-Public Use
  Company Number: GB-SHIRE-GB201403589

PATIENT
  Age: 26 Year
  Sex: Male

DRUGS (1)
  1. ELAPRASE [Suspect]
     Active Substance: IDURSULFASE
     Indication: PRODUCT USED FOR UNKNOWN INDICATION
     Dosage: 6 MG (3 ML), UNKNOWN
     Route: 041

REACTIONS (4)
  - Fluid intake reduced [Recovering/Resolving]
  - Thrombosis in device [Recovering/Resolving]
  - Pruritus [Recovering/Resolving]
  - Poor venous access [Recovering/Resolving]

NARRATIVE: CASE EVENT DATE: 20140706
